FAERS Safety Report 17488415 (Version 1)
Quarter: 2020Q1

REPORT INFORMATION
  Report Type: Spontaneous
  Country: US (occurrence: US)
  Receive Date: 20200220
  Receipt Date: 20200220
  Transmission Date: 20200409
  Serious: No
  Sender: FDA-Public Use
  Company Number: None

PATIENT
  Age: 56 Year
  Sex: Female

DRUGS (1)
  1. TEMOZOLOMIDE 100MG SANDOZ [Suspect]
     Active Substance: TEMOZOLOMIDE
     Indication: BRAIN NEOPLASM MALIGNANT
     Dosage: ?          OTHER FREQUENCY:DAILY FOR 5 DAYS;?
     Route: 048
     Dates: start: 201911

REACTIONS (2)
  - Decreased appetite [None]
  - Weight decreased [None]

NARRATIVE: CASE EVENT DATE: 20200127
